FAERS Safety Report 9736657 (Version 1)
Quarter: 2013Q4

REPORT INFORMATION
  Report Type: Spontaneous
  Country: US (occurrence: US)
  Receive Date: 20131206
  Receipt Date: 20131206
  Transmission Date: 20140711
  Serious: Yes (Other)
  Sender: FDA-Public Use
  Company Number: US-PFIZER INC-2013349124

PATIENT
  Age: 43 Year
  Sex: Female
  Weight: 68 kg

DRUGS (6)
  1. GEODON [Suspect]
     Indication: PSYCHOTIC DISORDER
     Dosage: 120 MG, UNK
     Dates: start: 2013, end: 2013
  2. GEODON [Suspect]
     Dosage: 20 MG, 2X/DAY
     Dates: start: 2013, end: 2013
  3. GEODON [Suspect]
     Dosage: UNK
     Dates: start: 2013
  4. ABILIFY [Concomitant]
     Indication: PSYCHOTIC DISORDER
     Dosage: 5 MG, DAILY
  5. VYVANSE [Concomitant]
     Indication: ATTENTION DEFICIT/HYPERACTIVITY DISORDER
     Dosage: 60 MG, AS NEEDED
  6. SEROQUEL [Concomitant]
     Indication: MOOD ALTERED
     Dosage: 25 MG, AS NEEDED

REACTIONS (9)
  - Drug dose omission [Unknown]
  - Hypothalamo-pituitary disorder [Unknown]
  - Drug dependence [Unknown]
  - Malaise [Unknown]
  - Headache [Unknown]
  - Nausea [Unknown]
  - Cold sweat [Unknown]
  - Body temperature decreased [Unknown]
  - Amnesia [Unknown]
